FAERS Safety Report 8057536-4 (Version None)
Quarter: 2012Q1

REPORT INFORMATION
  Report Type: 
  Country: None (occurrence: None)
  Receive Date: 20120119
  Receipt Date: 20120112
  Transmission Date: 20120608
  Serious: Yes (Hospitalization)
  Sender: FDA-Public Use
  Company Number: BR-ASTRAZENECA-2012SE02700

PATIENT
  Age: 82 Year
  Sex: Female
  Weight: 70 kg

DRUGS (9)
  1. LOSARTAN POTASSIUM [Concomitant]
     Route: 048
     Dates: start: 20050101
  2. SEROQUEL [Suspect]
     Indication: CEREBROVASCULAR ACCIDENT
     Route: 048
     Dates: start: 20050101, end: 20111101
  3. SEROQUEL [Suspect]
     Route: 048
     Dates: start: 20111201, end: 20120101
  4. PONDERA [Concomitant]
     Indication: DEPRESSION
     Route: 048
     Dates: start: 20050101
  5. PERIDAL [Concomitant]
     Route: 048
     Dates: start: 20050101
  6. SEROQUEL [Suspect]
     Route: 048
     Dates: start: 20111101, end: 20111201
  7. AMLODIPINE BESYLATE [Concomitant]
     Route: 048
     Dates: start: 20050101
  8. SEROQUEL [Suspect]
     Route: 048
     Dates: start: 20120101
  9. PANTOPRAZOLE [Concomitant]
     Route: 048
     Dates: start: 20050101

REACTIONS (5)
  - DRUG PRESCRIBING ERROR [None]
  - RESTLESSNESS [None]
  - OFF LABEL USE [None]
  - INAPPROPRIATE SCHEDULE OF DRUG ADMINISTRATION [None]
  - DIVERTICULITIS [None]
